FAERS Safety Report 20112264 (Version 1)
Quarter: 2021Q4

REPORT INFORMATION
  Report Type: Spontaneous
  Country: US (occurrence: US)
  Receive Date: 20211125
  Receipt Date: 20211125
  Transmission Date: 20220303
  Serious: Yes (Other)
  Sender: FDA-Public Use
  Company Number: US-ABBVIE-21K-163-4171905-00

PATIENT
  Age: 64 Year
  Sex: Male

DRUGS (13)
  1. LUPRON [Suspect]
     Active Substance: LEUPROLIDE ACETATE
     Indication: Prostate cancer
     Route: 065
     Dates: start: 2011
  2. LUPRON [Suspect]
     Active Substance: LEUPROLIDE ACETATE
     Route: 065
     Dates: start: 2017
  3. ABIRATERONE [Concomitant]
     Active Substance: ABIRATERONE
     Indication: Product used for unknown indication
     Dates: start: 201909
  4. CABAZITAXEL [Concomitant]
     Active Substance: CABAZITAXEL
     Indication: Product used for unknown indication
     Dates: start: 20200909, end: 20201230
  5. XTANDI [Concomitant]
     Active Substance: ENZALUTAMIDE
     Indication: Product used for unknown indication
     Dates: start: 20210513
  6. DOCETAXEL [Concomitant]
     Active Substance: DOCETAXEL
     Indication: Product used for unknown indication
     Dosage: 60 MG/M2
     Dates: start: 20210702
  7. DOCETAXEL [Concomitant]
     Active Substance: DOCETAXEL
     Dosage: 60 MG/M2
     Dates: start: 20210729
  8. DOCETAXEL [Concomitant]
     Active Substance: DOCETAXEL
     Dosage: 75 MG/M2
     Dates: start: 20210818
  9. DOCETAXEL [Concomitant]
     Active Substance: DOCETAXEL
     Dosage: 75 MG/M2
     Dates: start: 20210910
  10. ENZALUTAMIDE [Concomitant]
     Active Substance: ENZALUTAMIDE
     Indication: Prostate cancer
     Dates: start: 2018
  11. ENZALUTAMIDE [Concomitant]
     Active Substance: ENZALUTAMIDE
     Dates: start: 20210108
  12. FIRMAGON [Concomitant]
     Active Substance: DEGARELIX ACETATE
     Indication: Prostate cancer
     Dates: start: 2018
  13. METFORMIN [Concomitant]
     Active Substance: METFORMIN HYDROCHLORIDE
     Indication: Prostate cancer
     Dates: start: 2018

REACTIONS (4)
  - Metastases to bone [Not Recovered/Not Resolved]
  - Hydronephrosis [Not Recovered/Not Resolved]
  - Ureteric stenosis [Unknown]
  - Lymphadenopathy [Unknown]

NARRATIVE: CASE EVENT DATE: 20200901
